FAERS Safety Report 24927080 (Version 1)
Quarter: 2025Q1

REPORT INFORMATION
  Report Type: Spontaneous
  Country: CN (occurrence: CN)
  Receive Date: 20250205
  Receipt Date: 20250205
  Transmission Date: 20250408
  Serious: Yes (Death)
  Sender: STRIDES
  Company Number: CN-STRIDES ARCOLAB LIMITED-2025SP001660

PATIENT

DRUGS (2)
  1. ROSUVASTATIN [Suspect]
     Active Substance: ROSUVASTATIN
     Indication: Ischaemic stroke
     Route: 065
  2. ALIROCUMAB [Suspect]
     Active Substance: ALIROCUMAB
     Indication: Ischaemic stroke
     Route: 065

REACTIONS (1)
  - Drug ineffective [Fatal]
